FAERS Safety Report 22811819 (Version 8)
Quarter: 2024Q1

REPORT INFORMATION
  Report Type: Spontaneous
  Country: US (occurrence: US)
  Receive Date: 20230811
  Receipt Date: 20240306
  Transmission Date: 20240410
  Serious: Yes (Hospitalization, Other)
  Sender: FDA-Public Use
  Company Number: US-EXELIXIS-CABO-23066750

PATIENT
  Age: 78 Year
  Sex: Female

DRUGS (18)
  1. OPDIVO [Suspect]
     Active Substance: NIVOLUMAB
     Indication: Clear cell renal cell carcinoma
     Dates: start: 20230717, end: 202308
  2. OPDIVO [Suspect]
     Active Substance: NIVOLUMAB
     Indication: Metastases to skin
  3. OPDIVO [Suspect]
     Active Substance: NIVOLUMAB
     Indication: Metastases to lung
     Dates: end: 202312
  4. CABOMETYX [Suspect]
     Active Substance: CABOZANTINIB S-MALATE
     Indication: Clear cell renal cell carcinoma
     Dosage: 40 MG, QD
     Dates: start: 20230717, end: 20230806
  5. CABOMETYX [Suspect]
     Active Substance: CABOZANTINIB S-MALATE
     Indication: Metastases to lung
     Dosage: 40 MG, QD
     Dates: start: 20230920
  6. CABOMETYX [Suspect]
     Active Substance: CABOZANTINIB S-MALATE
     Indication: Metastases to skin
     Dosage: 40 MG, QD
  7. CABOMETYX [Suspect]
     Active Substance: CABOZANTINIB S-MALATE
     Dosage: 20MG, QD
     Dates: start: 202312, end: 20231229
  8. CARDIZEM [Concomitant]
     Active Substance: DILTIAZEM HYDROCHLORIDE
     Indication: Product used for unknown indication
  9. CRESTOR [Concomitant]
     Active Substance: ROSUVASTATIN CALCIUM
     Indication: Product used for unknown indication
  10. ELIQUIS [Concomitant]
     Active Substance: APIXABAN
     Indication: Product used for unknown indication
  11. VITAMINS [Concomitant]
     Active Substance: VITAMINS
     Indication: Product used for unknown indication
  12. LOSARTAN [Concomitant]
     Active Substance: LOSARTAN
     Indication: Product used for unknown indication
  13. METOPROLOL [Concomitant]
     Active Substance: METOPROLOL
     Indication: Product used for unknown indication
  14. CALCIUM\VITAMIN D [Concomitant]
     Active Substance: CALCIUM\VITAMIN D
  15. FOSAMAX [Concomitant]
     Active Substance: ALENDRONATE SODIUM
  16. LATANOPROST [Concomitant]
     Active Substance: LATANOPROST
  17. LIDOCAINE AND PRILOCAINE [Concomitant]
     Active Substance: LIDOCAINE\PRILOCAINE
  18. LOPRESSOR [Concomitant]
     Active Substance: METOPROLOL TARTRATE

REACTIONS (21)
  - Tongue ulceration [Recovered/Resolved]
  - Haemoglobin decreased [Unknown]
  - Red blood cell count decreased [Unknown]
  - Hypertensive crisis [Recovering/Resolving]
  - Fatigue [Unknown]
  - Asthenia [Unknown]
  - Dyspnoea [Unknown]
  - Dysphonia [Unknown]
  - Weight decreased [Unknown]
  - Decreased appetite [Unknown]
  - Balance disorder [Unknown]
  - Thyroid disorder [Unknown]
  - Urinary tract infection [Unknown]
  - Confusional state [Unknown]
  - Cellulitis [Unknown]
  - Urosepsis [Unknown]
  - Palmar-plantar erythrodysaesthesia syndrome [Recovered/Resolved]
  - Impaired healing [Not Recovered/Not Resolved]
  - Pain [Unknown]
  - Respiratory tract congestion [Unknown]
  - Depression [Not Recovered/Not Resolved]

NARRATIVE: CASE EVENT DATE: 20230701
